FAERS Safety Report 5832990-4 (Version None)
Quarter: 2008Q3

REPORT INFORMATION
  Report Type: 
  Country: None (occurrence: None)
  Receive Date: 20080804
  Receipt Date: 20080801
  Transmission Date: 20090109
  Serious: Yes (Disabling)
  Sender: FDA-Public Use
  Company Number: AU-MERCK-0512AUS00234

PATIENT
  Age: 41 Year
  Sex: Female

DRUGS (1)
  1. FOSAMAX [Suspect]
     Indication: OSTEOPOROSIS
     Route: 048
     Dates: start: 20000101, end: 20040101

REACTIONS (3)
  - DRUG INEFFECTIVE [None]
  - FEMORAL NECK FRACTURE [None]
  - IMPAIRED HEALING [None]
